FAERS Safety Report 20851078 (Version 1)
Quarter: 2022Q2

REPORT INFORMATION
  Report Type: Spontaneous
  Country: BG (occurrence: BG)
  Receive Date: 20220519
  Receipt Date: 20220519
  Transmission Date: 20220720
  Serious: Yes (Hospitalization, Other)
  Sender: FDA-Public Use
  Company Number: BG-009507513-2205BGR005111

PATIENT
  Age: 65 Year
  Sex: Female

DRUGS (1)
  1. KEYTRUDA [Suspect]
     Active Substance: PEMBROLIZUMAB
     Indication: Nodular melanoma
     Dosage: 200 MILLIGRAM, Q3W
     Route: 042
     Dates: start: 202101

REACTIONS (5)
  - Pemphigoid [Unknown]
  - Malignant neoplasm progression [Unknown]
  - Skin erosion [Unknown]
  - Mucosal erosion [Unknown]
  - Skin discolouration [Recovered/Resolved]

NARRATIVE: CASE EVENT DATE: 20210201
